FAERS Safety Report 4427293-9 (Version None)
Quarter: 2004Q3

REPORT INFORMATION
  Report Type: 
  Country: None (occurrence: None)
  Receive Date: 20040813
  Receipt Date: 20040813
  Transmission Date: 20050211
  Serious: Yes (Other)
  Sender: FDA-Public Use
  Company Number: None

PATIENT
  Age: 31 Year
  Sex: Female
  Weight: 65.7716 kg

DRUGS (1)
  1. ZOLOFT [Suspect]
     Indication: DEPRESSION
     Dosage: 1 A DAY
     Dates: start: 19960710, end: 20031226

REACTIONS (5)
  - ABNORMAL BEHAVIOUR [None]
  - APATHY [None]
  - FAMILY STRESS [None]
  - MARITAL PROBLEM [None]
  - RELATIONSHIP BREAKDOWN [None]
